FAERS Safety Report 6756013-8 (Version None)
Quarter: 2010Q2

REPORT INFORMATION
  Report Type: 
  Country: None (occurrence: None)
  Receive Date: 20100524
  Receipt Date: 20100202
  Transmission Date: 20101027
  Serious: No
  Sender: FDA-Public Use
  Company Number: 006132

PATIENT
  Sex: Female
  Weight: 87.7 kg

DRUGS (5)
  1. CIMZIA [Suspect]
     Indication: RHEUMATOID ARTHRITIS
     Dosage: (400 MG SUBCUTANEOUS)
     Route: 058
     Dates: start: 20090101, end: 20090801
  2. ACTONEL [Suspect]
     Indication: RHEUMATOID ARTHRITIS
     Dosage: (ORAL)
     Route: 048
     Dates: end: 20091201
  3. SIMVASTATIN [Suspect]
     Indication: BLOOD CHOLESTEROL
     Dosage: (ORAL)
     Route: 048
     Dates: end: 20091201
  4. ATENOLOL [Concomitant]
  5. METFORMIN HCL [Concomitant]

REACTIONS (3)
  - ARTHRALGIA [None]
  - BALANCE DISORDER [None]
  - CONFUSIONAL STATE [None]
